FAERS Safety Report 17371554 (Version 1)
Quarter: 2020Q1

REPORT INFORMATION
  Report Type: Spontaneous
  Country: US (occurrence: US)
  Receive Date: 20200205
  Receipt Date: 20200205
  Transmission Date: 20200409
  Serious: Yes (Other)
  Sender: FDA-Public Use
  Company Number: US-BRISTOL-MYERS SQUIBB COMPANY-BMS-2020-008481

PATIENT
  Sex: Female

DRUGS (1)
  1. ELIQUIS [Suspect]
     Active Substance: APIXABAN
     Indication: CEREBROVASCULAR ACCIDENT PROPHYLAXIS
     Dosage: UNK
     Route: 065

REACTIONS (7)
  - Skin discolouration [Unknown]
  - Contusion [Unknown]
  - Asthenia [Unknown]
  - Malaise [Unknown]
  - Sinusitis [Unknown]
  - Headache [Unknown]
  - Internal haemorrhage [Unknown]
